FAERS Safety Report 6060972-9 (Version None)
Quarter: 2009Q1

REPORT INFORMATION
  Report Type: 
  Country: None (occurrence: None)
  Receive Date: 20090129
  Receipt Date: 20090129
  Transmission Date: 20090719
  Serious: Yes (Hospitalization)
  Sender: FDA-Public Use
  Company Number: None

PATIENT
  Age: 57 Year
  Sex: Female
  Weight: 55.3388 kg

DRUGS (12)
  1. LAPATINIB (IND # 72,323) [Suspect]
     Indication: OVARIAN CANCER
     Dosage: 1000MG PO QD
     Route: 048
     Dates: start: 20051114, end: 20090121
  2. CARBOPLATIN [Suspect]
     Dosage: AUC 2 IV
     Route: 042
     Dates: start: 20051114, end: 20090106
  3. TAXOL [Suspect]
     Dosage: 6 MG/M2 IV Q3W
     Route: 042
     Dates: start: 20051114, end: 20090106
  4. LORAZEPAM [Concomitant]
  5. ASPIRIN [Concomitant]
  6. VITAMIN D [Concomitant]
  7. LIPITOR [Concomitant]
  8. ZOFRAN [Concomitant]
  9. DECADRON [Concomitant]
  10. BENADRYL [Concomitant]
  11. PEPCID [Concomitant]
  12. ATIVAN [Concomitant]

REACTIONS (5)
  - DYSARTHRIA [None]
  - HEADACHE [None]
  - HYPOAESTHESIA [None]
  - MENTAL STATUS CHANGES [None]
  - VISION BLURRED [None]
